FAERS Safety Report 10197918 (Version 6)
Quarter: 2015Q3

REPORT INFORMATION
  Report Type: Spontaneous
  Country: US (occurrence: US)
  Receive Date: 20140527
  Receipt Date: 20150716
  Transmission Date: 20151125
  Serious: Yes (Hospitalization, Disabling, Other)
  Sender: FDA-Public Use
  Company Number: US-009507513-1405USA011488

PATIENT
  Sex: Female

DRUGS (9)
  1. FOSAMAX [Suspect]
     Active Substance: ALENDRONATE SODIUM
     Dosage: 70 MG, QW
     Route: 048
     Dates: end: 200510
  2. CALCIUM (UNSPECIFIED) [Concomitant]
     Active Substance: CALCIUM
     Dosage: UNK
     Dates: start: 1999
  3. VITAMIN B COMPLEX [Concomitant]
     Active Substance: CYANOCOBALAMIN\DEXPANTHENOL\NIACINAMIDE\PYRIDOXINE HYDROCHLORIDE\RIBOFLAVIN 5^-PHOSPHATE SODIUM\THIAMINE HYDROCHLORIDE\VITAMIN B COMPLEX
     Dosage: UNK
     Dates: start: 1999
  4. ALENDRONATE SODIUM. [Suspect]
     Active Substance: ALENDRONATE SODIUM
     Dosage: 70 MG, UNK
     Route: 048
     Dates: start: 20081002, end: 20090109
  5. FOSAMAX [Suspect]
     Active Substance: ALENDRONATE SODIUM
     Indication: OSTEOPOROSIS PROPHYLAXIS
     Dosage: UNK
     Route: 048
     Dates: start: 1995
  6. ASCORBIC ACID. [Concomitant]
     Active Substance: ASCORBIC ACID
     Dosage: UNK
     Dates: start: 1999
  7. VITAMINS (UNSPECIFIED) [Concomitant]
     Active Substance: VITAMINS
     Dosage: UNK
     Dates: start: 1999
  8. FOSAMAX PLUS D [Suspect]
     Active Substance: ALENDRONATE SODIUM\CHOLECALCIFEROL
     Dosage: 70/2800, 1 TABLET, WEEKLY
     Route: 048
     Dates: start: 20070202, end: 20080612
  9. CHOLECALCIFEROL [Concomitant]
     Active Substance: CHOLECALCIFEROL
     Dosage: UNK
     Dates: start: 1999

REACTIONS (18)
  - Coronary arterial stent insertion [Unknown]
  - Anaemia postoperative [Unknown]
  - Fall [Unknown]
  - Hysterectomy [Unknown]
  - Fall [Unknown]
  - Cholecystectomy [Unknown]
  - Wrist fracture [Unknown]
  - Hypertension [Unknown]
  - Osteoporosis [Not Recovered/Not Resolved]
  - Subdural haematoma [Unknown]
  - Anxiety [Unknown]
  - Dental implantation [Unknown]
  - Blood cholesterol increased [Unknown]
  - Arthritis [Unknown]
  - Bursitis [Recovered/Resolved]
  - Mitral valve prolapse [Unknown]
  - Osteoporosis [Unknown]
  - Femur fracture [Not Recovered/Not Resolved]

NARRATIVE: CASE EVENT DATE: 1999
